FAERS Safety Report 7402051-1 (Version None)
Quarter: 2011Q2

REPORT INFORMATION
  Report Type: 
  Country: None (occurrence: None)
  Receive Date: 20110408
  Receipt Date: 20110329
  Transmission Date: 20111010
  Serious: Yes (Other)
  Sender: FDA-Public Use
  Company Number: AR-AMGEN-ARGSP2011015431

PATIENT
  Sex: Female

DRUGS (1)
  1. ENBREL [Suspect]
     Indication: RHEUMATOID ARTHRITIS
     Dosage: UNK
     Dates: start: 20060501

REACTIONS (6)
  - DRUG INEFFECTIVE [None]
  - PAPULE [None]
  - RHEUMATOID ARTHRITIS [None]
  - LARYNGEAL OEDEMA [None]
  - FLUID RETENTION [None]
  - OEDEMA PERIPHERAL [None]
